FAERS Safety Report 20728867 (Version 1)
Quarter: 2022Q2

REPORT INFORMATION
  Report Type: Spontaneous
  Country: FR (occurrence: FR)
  Receive Date: 20220420
  Receipt Date: 20220420
  Transmission Date: 20220720
  Serious: Yes (Other)
  Sender: FDA-Public Use
  Company Number: FR-AFSSAPS-AVPA20220106

PATIENT
  Age: 16 Year
  Sex: Female

DRUGS (1)
  1. ALPRAZOLAM [Suspect]
     Active Substance: ALPRAZOLAM
     Indication: Product used for unknown indication
     Dosage: UNK (30 CP OF 0.5 MG IN ONE DAY, TAKEN FREQUENTLY WITHOUT NOTION OF FREQUENCY)
     Route: 048
     Dates: start: 20211228, end: 20211228

REACTIONS (2)
  - Intentional product misuse [Unknown]
  - Bradyphrenia [Unknown]

NARRATIVE: CASE EVENT DATE: 20211228
